FAERS Safety Report 20872601 (Version 1)
Quarter: 2022Q2

REPORT INFORMATION
  Report Type: Spontaneous
  Country: CN (occurrence: CN)
  Receive Date: 20220525
  Receipt Date: 20220525
  Transmission Date: 20220721
  Serious: Yes (Other)
  Sender: FDA-Public Use
  Company Number: CN-009507513-2205CHN007004

PATIENT
  Age: 94 Year
  Sex: Female
  Weight: 43 kg

DRUGS (5)
  1. CILASTATIN SODIUM\IMIPENEM [Suspect]
     Active Substance: CILASTATIN SODIUM\IMIPENEM
     Indication: Infection
     Dosage: 0.5 GRAMS Q6H
     Route: 041
     Dates: start: 20220429, end: 20220507
  2. CILASTATIN SODIUM\IMIPENEM [Suspect]
     Active Substance: CILASTATIN SODIUM\IMIPENEM
     Dosage: 0.5 GRAM, Q8H
     Route: 041
     Dates: start: 20220507, end: 20220510
  3. VANCOMYCIN [Concomitant]
     Active Substance: VANCOMYCIN
     Indication: Infection
     Dosage: 500 MG Q12H
     Route: 041
     Dates: start: 20220429, end: 20220507
  4. PIPERACILLIN AND TAZOBACTAM [Concomitant]
     Active Substance: PIPERACILLIN SODIUM\TAZOBACTAM SODIUM
     Indication: Anti-infective therapy
     Dosage: 4.5 MILLIGRAM, Q8H
     Dates: start: 202204, end: 20220427
  5. MEROPENEM [Concomitant]
     Active Substance: MEROPENEM
     Indication: Anti-infective therapy
     Dosage: 0.5 MILLIGRAM, Q12H
     Route: 042
     Dates: start: 20220427, end: 20220429

REACTIONS (3)
  - Seizure [Recovering/Resolving]
  - Neurotoxicity [Unknown]
  - Muscle rigidity [Recovering/Resolving]

NARRATIVE: CASE EVENT DATE: 20220101
